FAERS Safety Report 12775955 (Version 1)
Quarter: 2016Q3

REPORT INFORMATION
  Report Type: Spontaneous
  Country: US (occurrence: US)
  Receive Date: 20160923
  Receipt Date: 20160923
  Transmission Date: 20161109
  Serious: Yes (Hospitalization)
  Sender: FDA-Public Use
  Company Number: US-SAOL THERAPEUTICS-2016SAO00251

PATIENT
  Age: 49 Year
  Sex: Male
  Weight: 61.68 kg

DRUGS (14)
  1. BACLOFEN. [Suspect]
     Active Substance: BACLOFEN
     Dosage: 175 ?G \DAY
  2. CLINDAMYCIN [Suspect]
     Active Substance: CLINDAMYCIN\CLINDAMYCIN PHOSPHATE
     Dosage: UNK
     Dates: start: 20160706
  3. MVI [Concomitant]
     Active Substance: VITAMINS
  4. VITAMIN D [Concomitant]
     Active Substance: CHOLECALCIFEROL
     Dosage: 1000 IU, UNK
  5. LISINOPRIL. [Concomitant]
     Active Substance: LISINOPRIL
     Dosage: 10 MG, UNK
  6. NORVASC [Concomitant]
     Active Substance: AMLODIPINE BESYLATE
     Dosage: 5 MG, UNK
  7. LAMICTAL [Concomitant]
     Active Substance: LAMOTRIGINE
     Dosage: 200 MG, UNK
  8. TEGRETOL [Concomitant]
     Active Substance: CARBAMAZEPINE
     Dosage: 200 MG, UNK
  9. BACLOFEN. [Suspect]
     Active Substance: BACLOFEN
     Dosage: 201.1 ?G, \DAY
     Route: 037
  10. KEPPRA [Concomitant]
     Active Substance: LEVETIRACETAM
     Dosage: 1000 UNK, UNK
  11. MIRALAX [Concomitant]
     Active Substance: POLYETHYLENE GLYCOL 3350
  12. BACLOFEN. [Concomitant]
     Active Substance: BACLOFEN
     Dosage: 10 MG, UNK
  13. CLEOCIN [Concomitant]
     Active Substance: CLINDAMYCIN PHOSPHATE
     Dosage: 300 MG, UNK
  14. HYDROCODONE/ACETAMINOPHEN [Concomitant]
     Active Substance: ACETAMINOPHEN\HYDROCODONE
     Dosage: UNK

REACTIONS (6)
  - White blood cell count increased [Unknown]
  - Haematocrit decreased [Unknown]
  - Muscle spasticity [Recovered/Resolved]
  - Haemoglobin decreased [Unknown]
  - Asthenia [Unknown]
  - Drug hypersensitivity [Recovered/Resolved]

NARRATIVE: CASE EVENT DATE: 2016
